FAERS Safety Report 15723061 (Version 1)
Quarter: 2018Q4

REPORT INFORMATION
  Report Type: Spontaneous
  Country: RU (occurrence: RU)
  Receive Date: 20181214
  Receipt Date: 20181214
  Transmission Date: 20190205
  Serious: Yes (Hospitalization, Other)
  Sender: FDA-Public Use
  Company Number: RU-IPSEN BIOPHARMACEUTICALS, INC.-2018-19174

PATIENT
  Age: 59 Year
  Weight: 86 kg

DRUGS (1)
  1. DYSPORT [Suspect]
     Active Substance: ABOBOTULINUMTOXINA
     Indication: TORTICOLLIS
     Dates: start: 201402

REACTIONS (3)
  - Neuromuscular toxicity [Recovered/Resolved]
  - Neuromuscular toxicity [Recovered/Resolved]
  - Overdose [Unknown]

NARRATIVE: CASE EVENT DATE: 2014
